FAERS Safety Report 16201777 (Version 1)
Quarter: 2019Q2

REPORT INFORMATION
  Report Type: Spontaneous
  Country: US (occurrence: US)
  Receive Date: 20190415
  Receipt Date: 20190415
  Transmission Date: 20190711
  Serious: Yes (Other)
  Sender: FDA-Public Use
  Company Number: None

PATIENT
  Age: 55 Year
  Sex: Female

DRUGS (2)
  1. ESTRADIOL TRANSDERMAL SYSTEM [Suspect]
     Active Substance: ESTRADIOL
     Indication: MENOPAUSE
     Route: 062
     Dates: start: 20190401
  2. LEVOTHYROXINE 88 MCG [Concomitant]
     Active Substance: LEVOTHYROXINE
     Dates: start: 20160901

REACTIONS (3)
  - Product substitution issue [None]
  - Drug ineffective [None]
  - Hot flush [None]

NARRATIVE: CASE EVENT DATE: 20190415
